FAERS Safety Report 8413441-2 (Version None)
Quarter: 2012Q2

REPORT INFORMATION
  Report Type: 
  Country: None (occurrence: None)
  Receive Date: 20120605
  Receipt Date: 20120604
  Transmission Date: 20120825
  Serious: Yes (Other)
  Sender: FDA-Public Use
  Company Number: RU-ROCHE-1074571

PATIENT
  Age: 35 Year
  Sex: Male

DRUGS (2)
  1. FUZEON [Suspect]
     Indication: HIV INFECTION
     Route: 058
     Dates: start: 20120524
  2. EPIVIR [Concomitant]

REACTIONS (2)
  - IRRITABILITY [None]
  - DISORIENTATION [None]
